FAERS Safety Report 5763347-2 (Version None)
Quarter: 2008Q2

REPORT INFORMATION
  Report Type: 
  Country: None (occurrence: None)
  Receive Date: 20080609
  Receipt Date: 20080530
  Transmission Date: 20081010
  Serious: Yes (Life-Threatening, Hospitalization, Other)
  Sender: FDA-Public Use
  Company Number: JP-ABBOTT-05P-087-0318937-00

PATIENT
  Age: 57 Year
  Sex: Male

DRUGS (13)
  1. VALPROATE SODIUM [Suspect]
     Indication: MANIA
     Dosage: NOT REPORTED
  2. VALPROATE SODIUM [Suspect]
     Dosage: NOT REPORTED
     Dates: start: 20050501
  3. LODOPIN [Suspect]
     Indication: BIPOLAR I DISORDER
     Route: 048
     Dates: start: 20050203, end: 20050208
  4. CARBAMAZEPINE [Suspect]
     Indication: DRUG USE FOR UNKNOWN INDICATION
     Dosage: NOT REPORTED
  5. LITHIUM CARBONATE [Suspect]
     Indication: BIPOLAR I DISORDER
     Dates: start: 20050203, end: 20050208
  6. LITHIUM CARBONATE [Suspect]
     Dates: start: 20050101, end: 20050101
  7. LITHIUM CARBONATE [Suspect]
     Dates: start: 20050101, end: 20050101
  8. LITHIUM CARBONATE [Suspect]
     Dates: start: 20050101, end: 20050101
  9. LITHIUM CARBONATE [Suspect]
     Dates: start: 20050501
  10. PROMETHAZINE HCL [Concomitant]
     Indication: DRUG USE FOR UNKNOWN INDICATION
     Dates: start: 20050203, end: 20050208
  11. NITRAZEPAM [Concomitant]
     Indication: BIPOLAR I DISORDER
     Dates: start: 20050203, end: 20050208
  12. CHLORPROMAZINE [Concomitant]
     Indication: BIPOLAR I DISORDER
     Dates: start: 20050203, end: 20050208
  13. PHENOBARBITAL TAB [Concomitant]
     Indication: BIPOLAR I DISORDER
     Dates: start: 20050203, end: 20050208

REACTIONS (3)
  - ATRIOVENTRICULAR BLOCK COMPLETE [None]
  - CARDIAC ARREST [None]
  - FEELING ABNORMAL [None]
